FAERS Safety Report 23182465 (Version 1)
Quarter: 2023Q4

REPORT INFORMATION
  Report Type: Spontaneous
  Country: US (occurrence: None)
  Receive Date: 20231114
  Receipt Date: 20231114
  Transmission Date: 20240110
  Serious: Yes (Hospitalization)
  Sender: FDA-Public Use
  Company Number: None

PATIENT
  Sex: Female

DRUGS (1)
  1. XOLAIR [Suspect]
     Active Substance: OMALIZUMAB
     Indication: Asthma
     Dosage: OTHER FREQUENCY : EVERY28DAYS ;?
     Route: 058
     Dates: start: 20201027

REACTIONS (3)
  - Transient ischaemic attack [None]
  - Thrombosis [None]
  - Tympanic membrane perforation [None]
